FAERS Safety Report 20296864 (Version 2)
Quarter: 2023Q1

REPORT INFORMATION
  Report Type: Other
  Country: US (occurrence: None)
  Receive Date: 20220105
  Receipt Date: 20230105
  Transmission Date: 20230418
  Serious: No
  Sender: FDA-Public Use
  Company Number: US-ROCHE-2930073

PATIENT
  Age: 54 Year
  Sex: Female
  Weight: 113.05 kg

DRUGS (3)
  1. OCREVUS [Suspect]
     Active Substance: OCRELIZUMAB
     Indication: Relapsing multiple sclerosis
     Dosage: 07/NOV/2018, 26/SEP/2019, 23/OCT/2018, 08/MAY/2019, 08/NOV/2019, 18/JUN/2020, 08/SEP/2020
     Route: 042
     Dates: start: 2019
  2. OCREVUS [Suspect]
     Active Substance: OCRELIZUMAB
     Dosage: 300 MG - 2 WEEKS LATER
     Route: 042
  3. OCREVUS [Suspect]
     Active Substance: OCRELIZUMAB
     Route: 042
     Dates: start: 20181023

REACTIONS (8)
  - Feeling abnormal [Recovered/Resolved]
  - Fall [Unknown]
  - Off label use [Unknown]
  - COVID-19 [Recovered/Resolved]
  - Intervertebral disc protrusion [Not Recovered/Not Resolved]
  - Burning sensation [Not Recovered/Not Resolved]
  - Arthropathy [Unknown]
  - Anosmia [Not Recovered/Not Resolved]

NARRATIVE: CASE EVENT DATE: 20190101
